FAERS Safety Report 8296928-5 (Version None)
Quarter: 2012Q2

REPORT INFORMATION
  Report Type: 
  Country: None (occurrence: None)
  Receive Date: 20120419
  Receipt Date: 20120409
  Transmission Date: 20120825
  Serious: No
  Sender: FDA-Public Use
  Company Number: US-BIOGENIDEC-2012BI012456

PATIENT
  Age: 47 Year
  Sex: Female

DRUGS (2)
  1. TYSABRI [Suspect]
     Indication: MULTIPLE SCLEROSIS
     Route: 042
     Dates: start: 20090505, end: 20120101
  2. TYSABRI [Suspect]
     Route: 042
     Dates: start: 20120101

REACTIONS (7)
  - MULTIPLE SCLEROSIS RELAPSE [None]
  - LOSS OF CONTROL OF LEGS [None]
  - DRUG HYPERSENSITIVITY [None]
  - ORAL CANDIDIASIS [None]
  - FATIGUE [None]
  - PNEUMONIA [None]
  - EXERCISE TOLERANCE DECREASED [None]
